FAERS Safety Report 10452701 (Version 1)
Quarter: 2014Q3

REPORT INFORMATION
  Report Type: Spontaneous
  Country: US (occurrence: None)
  Receive Date: 20140911
  Receipt Date: 20140911
  Transmission Date: 20150326
  Serious: Yes (Other)
  Sender: FDA-Public Use
  Company Number: VAL_03371_2014

PATIENT
  Age: 52 Year
  Sex: Female

DRUGS (30)
  1. METOPROLOL [Suspect]
     Active Substance: METOPROLOL
     Indication: PRODUCT USED FOR UNKNOWN INDICATION
     Dates: start: 201001
  2. TRASTUZUMAB [Suspect]
     Active Substance: TRASTUZUMAB
     Indication: BREAST CANCER
     Dates: start: 201001, end: 201004
  3. NORCO [Concomitant]
     Active Substance: ACETAMINOPHEN\HYDROCODONE BITARTRATE
  4. GINKO BILOBA [Concomitant]
  5. ERGOCALCIFEROL W/RETINOL [Concomitant]
  6. CYANOCOBALAMIN. [Concomitant]
     Active Substance: CYANOCOBALAMIN
  7. ALOE VERA [Concomitant]
     Active Substance: ALOE VERA LEAF
  8. FISH OIL [Concomitant]
     Active Substance: FISH OIL
  9. THIOCTIC ACID [Concomitant]
     Active Substance: .ALPHA.-LIPOIC ACID, (+/-)-
  10. TYKERB [Suspect]
     Active Substance: LAPATINIB DITOSYLATE
     Indication: BREAST CANCER
     Dosage: 1250 MG PER DAY (FIVE TABLETS DAILY) ORAL
     Route: 048
     Dates: start: 20100331, end: 20130502
  11. CARNITINE [Concomitant]
     Active Substance: CARNITINE
  12. UBIDECARENONE [Concomitant]
     Active Substance: UBIDECARENONE
  13. WARFARIN SODIUM. [Concomitant]
     Active Substance: WARFARIN SODIUM
  14. MELATONIN [Concomitant]
     Active Substance: MELATONIN
  15. COLECALCIFEROL [Concomitant]
     Active Substance: CHOLECALCIFEROL
  16. RADIOTHERAPY [Suspect]
     Active Substance: RADIATION THERAPY
     Indication: BREAST CANCER
     Dosage: (DF)
  17. GRAPE SEED ESTRACT /01364603/ [Concomitant]
  18. ZOMETA [Suspect]
     Active Substance: ZOLEDRONIC ACID
     Indication: PRODUCT USED FOR UNKNOWN INDICATION
     Dosage: (DF)
  19. PACLITAXEL. [Suspect]
     Active Substance: PACLITAXEL
     Indication: BREAST CANCER
     Dates: start: 201001
  20. VANQUISH /00612601/ [Concomitant]
  21. VITAMIN B COMPLEX [Concomitant]
     Active Substance: CYANOCOBALAMIN\DEXPANTHENOL\NIACINAMIDE\PYRIDOXINE HYDROCHLORIDE\RIBOFLAVIN 5^-PHOSPHATE SODIUM\THIAMINE HYDROCHLORIDE\VITAMIN B COMPLEX
  22. SILYMARIN [Concomitant]
     Active Substance: MILK THISTLE
  23. OLIVE OIL [Concomitant]
     Active Substance: OLIVE OIL
  24. OMEGA-3 MARINE TRIGLYCERIDES [Concomitant]
     Active Substance: FISH OIL
  25. ASCORBIC ACID. [Concomitant]
     Active Substance: ASCORBIC ACID
  26. COCONUT OIL [Concomitant]
     Active Substance: COCONUT OIL
  27. PREGABALIN. [Concomitant]
     Active Substance: PREGABALIN
  28. ADDERALL [Concomitant]
     Active Substance: AMPHETAMINE ASPARTATE\AMPHETAMINE SULFATE\DEXTROAMPHETAMINE SACCHARATE\DEXTROAMPHETAMINE SULFATE
  29. MAGNESIUM SALT [Concomitant]
  30. DOCOSAHEXANOIC ACID [Concomitant]

REACTIONS (42)
  - Middle insomnia [None]
  - Renal impairment [None]
  - Paraesthesia [None]
  - Cough [None]
  - Rash [None]
  - Chest pain [None]
  - Extrasystoles [None]
  - Muscular weakness [None]
  - Fatigue [None]
  - Tension [None]
  - Epistaxis [None]
  - Arthralgia [None]
  - Dyspepsia [None]
  - Musculoskeletal pain [None]
  - Vomiting [None]
  - Thyroid function test abnormal [None]
  - Hyperventilation [None]
  - Anxiety [None]
  - Feeling hot [None]
  - Chest discomfort [None]
  - Myalgia [None]
  - Dry skin [None]
  - Abasia [None]
  - Nasal congestion [None]
  - Lymphoedema [None]
  - Heart rate irregular [None]
  - Flatulence [None]
  - Onychalgia [None]
  - Neuropathy peripheral [None]
  - Nausea [None]
  - Hallucination [None]
  - Pain [None]
  - Diarrhoea [None]
  - Back pain [None]
  - Anaemia [None]
  - Panic attack [None]
  - Cardiac disorder [None]
  - Dyspnoea [None]
  - Liver function test abnormal [None]
  - Hypoaesthesia [None]
  - Pain in extremity [None]
  - Weight increased [None]

NARRATIVE: CASE EVENT DATE: 20100321
